FAERS Safety Report 21077554 (Version 3)
Quarter: 2022Q3

REPORT INFORMATION
  Report Type: Spontaneous
  Country: JP (occurrence: JP)
  Receive Date: 20220713
  Receipt Date: 20220801
  Transmission Date: 20221027
  Serious: Yes (Life-Threatening, Hospitalization, Other)
  Sender: FDA-Public Use
  Company Number: JP-DSPHARMA-2022SMP002836

PATIENT
  Age: 44 Year
  Sex: Male
  Weight: 71 kg

DRUGS (3)
  1. LATUDA [Suspect]
     Active Substance: LURASIDONE HYDROCHLORIDE
     Indication: Schizophrenia
     Dosage: 40 MG, QD
     Route: 048
     Dates: start: 20220523, end: 20220525
  2. REXULTI [Concomitant]
     Active Substance: BREXPIPRAZOLE
     Indication: Schizophrenia
     Dosage: 2 MG, QD
     Route: 048
     Dates: start: 20210407, end: 20210623
  3. REXULTI [Concomitant]
     Active Substance: BREXPIPRAZOLE
     Dosage: 1 MG, QD
     Route: 048
     Dates: start: 20210624, end: 20220522

REACTIONS (3)
  - Acute myocardial infarction [Recovered/Resolved]
  - Prinzmetal angina [Recovered/Resolved]
  - Prinzmetal angina [Recovered/Resolved]

NARRATIVE: CASE EVENT DATE: 20220525
